FAERS Safety Report 9775390 (Version 10)
Quarter: 2014Q2

REPORT INFORMATION
  Report Type: Report from Study
  Country: BE (occurrence: BE)
  Receive Date: 20131220
  Receipt Date: 20140512
  Transmission Date: 20141212
  Serious: Yes (Hospitalization, Other)
  Sender: FDA-Public Use
  Company Number: BE-JNJFOC-20131209972

PATIENT
  Age: 20 Year
  Sex: Female
  Weight: 100 kg

DRUGS (9)
  1. REMICADE [Suspect]
     Indication: CROHN^S DISEASE
     Route: 042
     Dates: start: 20130206
  2. REMICADE [Suspect]
     Indication: CROHN^S DISEASE
     Route: 042
     Dates: start: 20031222, end: 20110204
  3. HUMIRA [Suspect]
     Indication: CROHN^S DISEASE
     Route: 065
     Dates: start: 20110223
  4. CIMZIA [Suspect]
     Indication: CROHN^S DISEASE
     Route: 065
     Dates: end: 20120613
  5. METHOTREXATE [Suspect]
     Indication: PRODUCT USED FOR UNKNOWN INDICATION
     Route: 065
  6. SUPRADYN [Concomitant]
     Route: 065
  7. STEOVIT D3 [Concomitant]
     Route: 065
  8. FOLIUMZUUR [Concomitant]
     Route: 065
  9. PANTOMED [Concomitant]
     Route: 065

REACTIONS (4)
  - Anal abscess [Recovered/Resolved with Sequelae]
  - Anal fistula [Not Recovered/Not Resolved]
  - Crohn^s disease [Recovered/Resolved]
  - Crohn^s disease [Recovered/Resolved with Sequelae]
